FAERS Safety Report 17487418 (Version 2)
Quarter: 2020Q1

REPORT INFORMATION
  Report Type: Spontaneous
  Country: PT (occurrence: PT)
  Receive Date: 20200303
  Receipt Date: 20200311
  Transmission Date: 20200409
  Serious: Yes (Death, Other)
  Sender: FDA-Public Use
  Company Number: PT-AMGEN-PRTSP2020032218

PATIENT

DRUGS (11)
  1. MELPHALAN. [Concomitant]
     Active Substance: MELPHALAN
     Dosage: UNK
  2. ALEMTUZUMAB [Concomitant]
     Active Substance: ALEMTUZUMAB
     Dosage: UNK
  3. CYCLOPHOSPHAMIDE. [Concomitant]
     Active Substance: CYCLOPHOSPHAMIDE
     Dosage: UNK
  4. BUSULFAN. [Concomitant]
     Active Substance: BUSULFAN
     Dosage: UNK
  5. ACYCLOVIR [ACICLOVIR] [Concomitant]
     Active Substance: ACYCLOVIR
     Indication: INFECTION PROPHYLAXIS
     Dosage: UNK
  6. COTRIMOXAZOLE [Concomitant]
     Active Substance: SULFAMETHOXAZOLE\TRIMETHOPRIM
     Indication: INFECTION PROPHYLAXIS
     Dosage: UNK
  7. FILGRASTIM [Suspect]
     Active Substance: FILGRASTIM
     Indication: PRODUCT USED FOR UNKNOWN INDICATION
     Dosage: UNK
     Route: 065
     Dates: start: 1995
  8. METHOTREXATE. [Concomitant]
     Active Substance: METHOTREXATE
     Indication: PROPHYLAXIS
     Dosage: UNK
  9. MYCOPHENOLATE MOFETIL. [Concomitant]
     Active Substance: MYCOPHENOLATE MOFETIL
     Indication: PROPHYLAXIS
     Dosage: UNK
  10. FLUDARABINE [Concomitant]
     Active Substance: FLUDARABINE PHOSPHATE
     Dosage: UNK
  11. GANCICLOVIR. [Concomitant]
     Active Substance: GANCICLOVIR
     Indication: ANTIVIRAL PROPHYLAXIS
     Dosage: UNK
     Dates: start: 1989

REACTIONS (21)
  - Ewing^s sarcoma [Fatal]
  - Head and neck cancer [Unknown]
  - Breast cancer [Unknown]
  - Cerebrovascular accident [Fatal]
  - Meningioma [Fatal]
  - Disease progression [Fatal]
  - Graft versus host disease [Fatal]
  - Thyroid cancer [Unknown]
  - Venoocclusive disease [Fatal]
  - Hepatic cancer [Fatal]
  - Completed suicide [Fatal]
  - Road traffic accident [Fatal]
  - Pharyngeal cancer [Fatal]
  - Basal cell carcinoma [Unknown]
  - Malignant melanoma [Unknown]
  - Myocardial infarction [Fatal]
  - Acute myeloid leukaemia [Unknown]
  - Infection [Fatal]
  - Transplant rejection [Fatal]
  - Bladder cancer [Fatal]
  - Diffuse large B-cell lymphoma [Unknown]
